FAERS Safety Report 9353891 (Version 1)
Quarter: 2013Q2

REPORT INFORMATION
  Report Type: Spontaneous
  Country: TR (occurrence: TR)
  Receive Date: 20130618
  Receipt Date: 20130618
  Transmission Date: 20140414
  Serious: Yes (Other)
  Sender: FDA-Public Use
  Company Number: TR-GLAXOSMITHKLINE-B0900307A

PATIENT
  Sex: Male

DRUGS (1)
  1. NIQUITIN 4 MG MINT LOZENGE [Suspect]
     Indication: EX-TOBACCO USER
     Route: 002

REACTIONS (2)
  - Dependence [Not Recovered/Not Resolved]
  - Hyperthyroidism [Unknown]
